FAERS Safety Report 7735708-3 (Version None)
Quarter: 2011Q3

REPORT INFORMATION
  Report Type: 
  Country: None (occurrence: None)
  Receive Date: 20110908
  Receipt Date: 20110829
  Transmission Date: 20111222
  Serious: Yes (Hospitalization)
  Sender: FDA-Public Use
  Company Number: US-BIOGENIDEC-2011BI001071

PATIENT
  Age: 59 Year
  Sex: Female
  Weight: 62 kg

DRUGS (11)
  1. ABILIFY [Concomitant]
     Route: 048
  2. LITHIUM CARBONATE [Concomitant]
     Route: 048
  3. FLOMAX [Concomitant]
     Route: 048
  4. LAMICTAL [Concomitant]
  5. VITAMIN D [Concomitant]
     Dosage: DOSE UNIT:1000
     Route: 048
  6. TYSABRI [Suspect]
     Route: 042
     Dates: start: 20101208
  7. SINGULAIR [Concomitant]
     Route: 048
  8. LITHIUM CARBONATE [Concomitant]
     Route: 048
  9. TYSABRI [Suspect]
     Indication: MULTIPLE SCLEROSIS
     Route: 042
     Dates: start: 20090914, end: 20100927
  10. ZOCOR [Concomitant]
     Route: 048
  11. WELLBUTRIN [Concomitant]
     Route: 048

REACTIONS (1)
  - OSTEOARTHRITIS [None]
